FAERS Safety Report 10621843 (Version 1)
Quarter: 2014Q4

REPORT INFORMATION
  Report Type: Spontaneous
  Country: US (occurrence: None)
  Receive Date: 20141201
  Receipt Date: 20141201
  Transmission Date: 20150529
  Serious: Yes (Life-Threatening)
  Sender: FDA-Public Use
  Company Number: None

PATIENT
  Age: 53 Year
  Sex: Female
  Weight: 61.24 kg

DRUGS (1)
  1. CHANTIX [Suspect]
     Active Substance: VARENICLINE TARTRATE
     Indication: SMOKING CESSATION THERAPY
     Dosage: VARIES TAKEN BY MOUTH
     Route: 048

REACTIONS (4)
  - Suicidal ideation [None]
  - Mood swings [None]
  - Mental impairment [None]
  - Depression [None]

NARRATIVE: CASE EVENT DATE: 20141102
